FAERS Safety Report 9411749 (Version 1)
Quarter: 2013Q3

REPORT INFORMATION
  Report Type: Spontaneous
  Country: US (occurrence: None)
  Receive Date: 20130719
  Receipt Date: 20130719
  Transmission Date: 20140515
  Serious: Yes (Life-Threatening, Hospitalization)
  Sender: FDA-Public Use
  Company Number: None

PATIENT
  Age: 64 Year
  Sex: Female
  Weight: 78 kg

DRUGS (11)
  1. BACLOFEN [Suspect]
     Indication: MUSCLE SPASMS
     Dosage: 1/2 PILL FOR 6 DAY THEN 1 PILL DAILY
     Route: 048
     Dates: start: 20130605, end: 20130620
  2. HYDRALAZINE [Concomitant]
  3. RENVELA [Concomitant]
  4. VITAMIN D [Concomitant]
  5. SENSIPAR [Concomitant]
  6. ALBUTEROL [Concomitant]
  7. PROCRIT [Concomitant]
  8. IRON [Concomitant]
  9. FISH OIL [Concomitant]
  10. ASPIRIN [Concomitant]
  11. VITAMINS [Concomitant]

REACTIONS (21)
  - Nausea [None]
  - Tremor [None]
  - Loss of consciousness [None]
  - Headache [None]
  - Vision blurred [None]
  - Vertigo [None]
  - Asthenia [None]
  - Dyspnoea [None]
  - Dysphagia [None]
  - Hyperhidrosis [None]
  - Convulsion [None]
  - Palpitations [None]
  - Paraesthesia [None]
  - Chills [None]
  - Pyrexia [None]
  - Dysarthria [None]
  - Constipation [None]
  - Photopsia [None]
  - Memory impairment [None]
  - Swollen tongue [None]
  - Unresponsive to stimuli [None]
